FAERS Safety Report 12666591 (Version 1)
Quarter: 2016Q3

REPORT INFORMATION
  Report Type: Report from Study
  Country: CO (occurrence: CO)
  Receive Date: 20160819
  Receipt Date: 20160819
  Transmission Date: 20161109
  Serious: Yes (Hospitalization)
  Sender: FDA-Public Use
  Company Number: CO-ROCHE-1815729

PATIENT
  Age: 62 Year
  Sex: Female
  Weight: 74 kg

DRUGS (6)
  1. TOCILIZUMAB [Suspect]
     Active Substance: TOCILIZUMAB
     Route: 042
     Dates: start: 20160501
  2. TOCILIZUMAB [Suspect]
     Active Substance: TOCILIZUMAB
     Indication: RHEUMATOID ARTHRITIS
     Route: 042
     Dates: start: 20150622
  3. TOCILIZUMAB [Suspect]
     Active Substance: TOCILIZUMAB
     Route: 042
     Dates: start: 20160315
  4. TOCILIZUMAB [Suspect]
     Active Substance: TOCILIZUMAB
     Route: 042
     Dates: start: 20160412
  5. CALCITRIOL. [Concomitant]
     Active Substance: CALCITRIOL
     Route: 048
  6. TOCILIZUMAB [Suspect]
     Active Substance: TOCILIZUMAB
     Route: 042
     Dates: start: 20151022

REACTIONS (2)
  - Vomiting [Recovered/Resolved]
  - Gastric ulcer [Recovered/Resolved with Sequelae]

NARRATIVE: CASE EVENT DATE: 20160626
